FAERS Safety Report 10097212 (Version 3)
Quarter: 2014Q2

REPORT INFORMATION
  Report Type: Spontaneous
  Country: US (occurrence: US)
  Receive Date: 20140422
  Receipt Date: 20140506
  Transmission Date: 20141212
  Serious: Yes (Hospitalization, Other)
  Sender: FDA-Public Use
  Company Number: PHEH2014US007068

PATIENT
  Age: 42 Year
  Sex: Male

DRUGS (18)
  1. GLEEVEC [Suspect]
     Indication: GASTROINTESTINAL STROMAL TUMOUR
     Dosage: 400 MG, DAILY
     Dates: start: 20070907, end: 201305
  2. LACTULOSE [Concomitant]
     Dosage: 2 DF, EVERY 4 HRS
     Route: 048
  3. COUMADINE [Concomitant]
     Dosage: 1.5 DF, QD
     Route: 048
  4. LOVENOX [Concomitant]
     Dosage: EVERY 12 HRS
  5. LEXAPRO [Concomitant]
     Dosage: UNK UKN, UNK
  6. NEXIAM [Concomitant]
     Dosage: 1 DF, BID
     Route: 048
  7. ZOFRAN [Concomitant]
     Dosage: 1 DF, TID
     Route: 048
  8. OXYCODONE HCL [Concomitant]
     Indication: PAIN
     Dosage: 2 DF, EVERY 4 HRS
  9. PROAIR HFA [Concomitant]
     Dosage: 2 DF, EVERY 4 HRS
  10. ESCITALOPRAM [Concomitant]
     Dosage: 1 DF, QD
     Route: 048
  11. DIPHENHYDRAMIN HCL [Concomitant]
     Indication: PRURITUS
     Dosage: 1 DF, EVERY 8 HRS
  12. KLOR CON [Concomitant]
     Dosage: 1 DF, TID
  13. RIFAXIMIN [Concomitant]
     Dosage: 1 DF, BID
  14. SPIRONOLACTONE [Concomitant]
     Dosage: 1 DF, QD
     Route: 048
  15. FENTANYL [Concomitant]
     Dosage: EVERY 72 HOURS
  16. AMBIEN [Concomitant]
     Dosage: ONCE AT BED TIME
  17. BUDESONIDE [Concomitant]
     Dosage: 2 ML, EVERY 12 HOURS
  18. ALBUTEROL [Concomitant]
     Dosage: UNK UKN, QD, 3-6 TIMES

REACTIONS (20)
  - Apparent death [Unknown]
  - Hepatic encephalopathy [Unknown]
  - Portal vein thrombosis [Unknown]
  - Inguinal hernia [Unknown]
  - Cholestasis [Unknown]
  - Cholangitis [Unknown]
  - Non-alcoholic steatohepatitis [Unknown]
  - Renal failure [Unknown]
  - Fluid retention [Unknown]
  - Liver injury [Unknown]
  - Hepatic failure [Unknown]
  - Portal hypertensive gastropathy [Unknown]
  - Hydrothorax [Unknown]
  - Testicular hypertrophy [Unknown]
  - Feeling abnormal [Unknown]
  - Diarrhoea [Unknown]
  - Pain [Unknown]
  - Back pain [Unknown]
  - Blood magnesium decreased [Unknown]
  - Ascites [Unknown]
